FAERS Safety Report 4746547-X (Version None)
Quarter: 2005Q3

REPORT INFORMATION
  Report Type: 
  Country: None (occurrence: None)
  Receive Date: 20050815
  Receipt Date: 20050805
  Transmission Date: 20060218
  Serious: Yes (Other)
  Sender: FDA-Public Use
  Company Number: 2005-06-0606

PATIENT
  Sex: Male

DRUGS (1)
  1. NITRO-DUR [Suspect]
     Dosage: TRANSDERMAL
     Route: 062

REACTIONS (3)
  - ANGINA PECTORIS [None]
  - ANGIOPLASTY [None]
  - PHARMACEUTICAL PRODUCT COMPLAINT [None]
